FAERS Safety Report 8796724 (Version 2)
Quarter: 2012Q4

REPORT INFORMATION
  Report Type: 
  Country: JP (occurrence: JP)
  Receive Date: 20120919
  Receipt Date: 20120929
  Transmission Date: 20130627
  Serious: Yes (Hospitalization)
  Sender: FDA-Public Use
  Company Number: JP-MERCK-1209JPN003053

PATIENT
  Age: 58 Year
  Sex: Female

DRUGS (3)
  1. BONALON [Suspect]
     Indication: OSTEOPOROSIS
     Dosage: 35 mg, qw
     Route: 048
  2. BONALON [Suspect]
     Dosage: 5 mg, qd
     Route: 048
  3. PREDNISOLONE [Suspect]
     Route: 065

REACTIONS (1)
  - Femur fracture [Recovered/Resolved]
